FAERS Safety Report 4451672-7 (Version None)
Quarter: 2004Q3

REPORT INFORMATION
  Report Type: 
  Country: None (occurrence: None)
  Receive Date: 20040915
  Receipt Date: 20040831
  Transmission Date: 20050211
  Serious: Yes (Death, Hospitalization)
  Sender: FDA-Public Use
  Company Number: 2004-06625

PATIENT
  Age: 57 Year
  Sex: Male
  Weight: 62 kg

DRUGS (19)
  1. TENOFOVIR DF (TENOFOVIR DISOPROXIL FUMARATE) [Suspect]
     Indication: HIV INFECTION
     Dosage: 300 MG, ONCE A DAY, ORAL
     Route: 048
     Dates: start: 20040525, end: 20040127
  2. INDINAVIR (INDINAVIR) [Concomitant]
  3. ENFUVIRTIDE (ENFUVIRTIDE) [Concomitant]
  4. KALETRA [Concomitant]
  5. DDI (DIDANOSINE) [Concomitant]
  6. PROPRANOLOL [Concomitant]
  7. MORPHINE SULFATE [Concomitant]
  8. APO-SULFATRIM (BACTRIM) [Concomitant]
  9. FOLIC ACID [Concomitant]
  10. TRAZODONE HCL [Concomitant]
  11. ZOPICLONE (ZOPICLONE) [Concomitant]
  12. VITAMIN B6 [Concomitant]
  13. SAIZEN [Concomitant]
  14. TETOSTERONE (TESTOSTERONE) [Concomitant]
  15. SINEMET [Concomitant]
  16. CRESTOR [Concomitant]
  17. CENTRUM (CENTRUM) [Concomitant]
  18. VITAMIN B12 [Concomitant]
  19. ZOFRAN [Concomitant]

REACTIONS (26)
  - ACUTE RESPIRATORY DISTRESS SYNDROME [None]
  - BLOOD CHLORIDE INCREASED [None]
  - BLOOD LACTATE DEHYDROGENASE INCREASED [None]
  - BRADYCARDIA [None]
  - CARDIAC DISORDER [None]
  - CARDIOGENIC SHOCK [None]
  - CD4 LYMPHOCYTES INCREASED [None]
  - DRUG TOXICITY [None]
  - ELECTROCARDIOGRAM T WAVE ABNORMAL [None]
  - FLUID OVERLOAD [None]
  - HAEMODIALYSIS [None]
  - HAEMODYNAMIC INSTABILITY [None]
  - HAEMOGLOBIN ABNORMAL [None]
  - HYPERKALAEMIA [None]
  - LOSS OF CONSCIOUSNESS [None]
  - METABOLIC ACIDOSIS [None]
  - MULTIPLE-DRUG RESISTANCE [None]
  - NODAL RHYTHM [None]
  - PLATELET COUNT DECREASED [None]
  - PNEUMOCYSTIS CARINII PNEUMONIA [None]
  - PULMONARY OEDEMA [None]
  - PYELONEPHRITIS [None]
  - RENAL FAILURE ACUTE [None]
  - ROAD TRAFFIC ACCIDENT [None]
  - SEPTIC SHOCK [None]
  - WEIGHT DECREASED [None]
